FAERS Safety Report 17846807 (Version 1)
Quarter: 2020Q2

REPORT INFORMATION
  Report Type: Spontaneous
  Country: FI (occurrence: FI)
  Receive Date: 20200601
  Receipt Date: 20200601
  Transmission Date: 20200714
  Serious: Yes (Other)
  Sender: FDA-Public Use
  Company Number: FI-BAYER-2020-093509

PATIENT
  Age: 17 Year
  Sex: Female

DRUGS (3)
  1. EASYHALER BECLOMETASONE [Concomitant]
     Indication: ASTHMA
     Dosage: 400 ?G, QD
     Route: 055
  2. JAYDESS [Suspect]
     Active Substance: LEVONORGESTREL
     Indication: CONTRACEPTION
     Dosage: 14 ?G PER DAY, CONTINUOUSLY
     Route: 015
     Dates: start: 20200123
  3. VENTOLINE [SALBUTAMOL SULFATE] [Concomitant]
     Active Substance: ALBUTEROL SULFATE
     Indication: ASTHMA
     Dosage: UNK
     Route: 055

REACTIONS (3)
  - Abortion spontaneous [Unknown]
  - Pregnancy with contraceptive device [Unknown]
  - Stress [Unknown]

NARRATIVE: CASE EVENT DATE: 20200429
